FAERS Safety Report 10156601 (Version 2)
Quarter: 2014Q2

REPORT INFORMATION
  Report Type: Spontaneous
  Country: US (occurrence: None)
  Receive Date: 20140505
  Receipt Date: 20140507
  Transmission Date: 20141212
  Serious: No
  Sender: FDA-Public Use
  Company Number: NXG-14-004

PATIENT
  Sex: Male

DRUGS (1)
  1. COLAZAL [Suspect]

REACTIONS (1)
  - Colitis ulcerative [None]
